FAERS Safety Report 10193552 (Version 3)
Quarter: 2018Q3

REPORT INFORMATION
  Report Type: Report from Study
  Country: US (occurrence: US)
  Receive Date: 20140524
  Receipt Date: 20180904
  Transmission Date: 20181010
  Serious: Yes (Hospitalization, Other)
  Sender: FDA-Public Use
  Company Number: US-SA-2014SA005621

PATIENT
  Age: 76 Year
  Sex: Female

DRUGS (10)
  1. VENLAFAXINE HYDROCHLORIDE. [Suspect]
     Active Substance: VENLAFAXINE HYDROCHLORIDE
     Indication: DEPRESSION
  2. ALPRAZOLAM. [Concomitant]
     Active Substance: ALPRAZOLAM
     Indication: MUSCLE SPASMS
     Dosage: UNK
  3. INSULIN GLULISINE [Suspect]
     Active Substance: INSULIN GLULISINE
     Indication: TYPE 1 DIABETES MELLITUS
     Dosage: 26 TO 28 UNITS/ EVERY MEAL AND SNACK
     Route: 058
     Dates: start: 2001, end: 201707
  4. INSULIN GLULISINE [Suspect]
     Active Substance: INSULIN GLULISINE
     Dosage: 26 TO 28 UNITS/ EVERY MEAL AND SNACK
     Route: 058
     Dates: start: 2001
  5. INSULIN GLARGINE [Suspect]
     Active Substance: INSULIN GLARGINE
     Indication: TYPE 1 DIABETES MELLITUS
     Dosage: 40 IU, QD/ EVERY NIGHT
     Route: 058
     Dates: start: 2000
  6. INSULIN GLARGINE [Suspect]
     Active Substance: INSULIN GLARGINE
     Dosage: UNK UNK,QD
     Route: 051
     Dates: start: 2005, end: 201707
  7. LYRICA [Concomitant]
     Active Substance: PREGABALIN
     Indication: MUSCLE SPASMS
     Dosage: UNK
  8. LISINOPRIL. [Concomitant]
     Active Substance: LISINOPRIL
     Indication: PROPHYLAXIS
     Dosage: UNK
  9. VENLAFAXINE HYDROCHLORIDE. [Suspect]
     Active Substance: VENLAFAXINE HYDROCHLORIDE
     Indication: NERVOUSNESS
     Dosage: UNK
  10. GABAPENTIN. [Suspect]
     Active Substance: GABAPENTIN
     Indication: PRODUCT USED FOR UNKNOWN INDICATION
     Dosage: UNK

REACTIONS (14)
  - Diabetic eye disease [Unknown]
  - Cerebrovascular accident [Recovered/Resolved]
  - Decreased appetite [Unknown]
  - Blood glucose increased [Not Recovered/Not Resolved]
  - Gait disturbance [Unknown]
  - Anxiety [Unknown]
  - Ill-defined disorder [Unknown]
  - Depression [Unknown]
  - Hemiplegia [Not Recovered/Not Resolved]
  - Aphasia [Unknown]
  - Drug dose omission [Unknown]
  - Pigmentation disorder [Unknown]
  - Bradyphrenia [Unknown]
  - Memory impairment [Not Recovered/Not Resolved]

NARRATIVE: CASE EVENT DATE: 201707
